FAERS Safety Report 5202682-3 (Version None)
Quarter: 2006Q4

REPORT INFORMATION
  Report Type: 
  Country: None (occurrence: None)
  Receive Date: 20061016
  Receipt Date: 20060801
  Transmission Date: 20070319
  Serious: No
  Sender: FDA-Public Use
  Company Number: 2006SP002885

PATIENT
  Age: 60 Year
  Sex: Male
  Weight: 83.9154 kg

DRUGS (4)
  1. LUNESTA [Suspect]
     Indication: INSOMNIA
     Dosage: 3 MG;ORAL
     Route: 048
     Dates: start: 20060401, end: 20060617
  2. TAMSULOSIN HCL [Concomitant]
  3. HYDROCHLORIDE [Concomitant]
  4. AVODART [Concomitant]

REACTIONS (4)
  - COUGH [None]
  - DRY MOUTH [None]
  - DYSPNOEA [None]
  - VOCAL CORD POLYP [None]
